FAERS Safety Report 9681669 (Version 3)
Quarter: 2015Q2

REPORT INFORMATION
  Report Type: Report from Study
  Country: CA (occurrence: CA)
  Receive Date: 20131111
  Receipt Date: 20150401
  Transmission Date: 20150821
  Serious: Yes (Other)
  Sender: FDA-Public Use
  Company Number: PHHY2013CA127568

PATIENT
  Age: 38 Year
  Sex: Male
  Weight: 159 kg

DRUGS (1)
  1. CLOZARIL [Suspect]
     Active Substance: CLOZAPINE
     Indication: PRODUCT USED FOR UNKNOWN INDICATION
     Dosage: UNK
     Route: 048
     Dates: start: 19960709

REACTIONS (6)
  - Myocardial ischaemia [Unknown]
  - Blood thyroid stimulating hormone increased [Unknown]
  - Electrocardiogram ST-T segment abnormal [Unknown]
  - Electrocardiogram abnormal [Unknown]
  - Left ventricular hypertrophy [Unknown]
  - Bundle branch block right [Unknown]

NARRATIVE: CASE EVENT DATE: 20101130
